FAERS Safety Report 5033604-6 (Version None)
Quarter: 2006Q2

REPORT INFORMATION
  Report Type: 
  Country: None (occurrence: None)
  Receive Date: 20060623
  Receipt Date: 20060524
  Transmission Date: 20061013
  Serious: Yes (Hospitalization)
  Sender: FDA-Public Use
  Company Number: US-AMGEN-STX180628

PATIENT
  Sex: Female

DRUGS (1)
  1. ENBREL [Suspect]
     Indication: RHEUMATOID ARTHRITIS
     Route: 058
     Dates: start: 20030501, end: 20060101

REACTIONS (12)
  - CARDIOMYOPATHY [None]
  - CONVULSION [None]
  - CRYOGLOBULINAEMIA [None]
  - GRAND MAL CONVULSION [None]
  - HEADACHE [None]
  - HEPATITIS C [None]
  - INFECTION [None]
  - INTRACRANIAL ANEURYSM [None]
  - LUNG INFECTION [None]
  - PNEUMONIA [None]
  - RENAL DISORDER [None]
  - RESPIRATORY FAILURE [None]
